FAERS Safety Report 9688317 (Version 1)
Quarter: 2013Q4

REPORT INFORMATION
  Report Type: Spontaneous
  Country: US (occurrence: None)
  Receive Date: 20131112
  Receipt Date: 20131112
  Transmission Date: 20140711
  Serious: Yes (Other)
  Sender: FDA-Public Use
  Company Number: ADR-2013-02055

PATIENT
  Age: 41 Year
  Sex: Male

DRUGS (6)
  1. BACLOFEN [Suspect]
     Indication: TARDIVE DYSKINESIA
     Dosage: DAY
  2. SERTRALINE [Suspect]
  3. TRAZADONE [Suspect]
  4. AMANTADINE [Suspect]
     Dosage: DAY
  5. BENZTROPINE [Suspect]
     Dosage: DAY
  6. DIPHENHYDRAMINE [Suspect]
     Dosage: /DAY AS NEEDED

REACTIONS (12)
  - Sedation [None]
  - Disturbance in attention [None]
  - Vision blurred [None]
  - Dry mouth [None]
  - Constipation [None]
  - Urinary hesitation [None]
  - Blepharospasm [None]
  - Grunting [None]
  - Dyspnoea [None]
  - Chorea [None]
  - Oromandibular dystonia [None]
  - Head titubation [None]
